FAERS Safety Report 8015248-7 (Version None)
Quarter: 2011Q4

REPORT INFORMATION
  Report Type: 
  Country: None (occurrence: None)
  Receive Date: 20111230
  Receipt Date: 20111220
  Transmission Date: 20120403
  Serious: No
  Sender: FDA-Public Use
  Company Number: US-BIOGENIDEC-2011BI048017

PATIENT
  Sex: Female

DRUGS (2)
  1. AVONEX [Suspect]
     Indication: MULTIPLE SCLEROSIS
     Route: 030
     Dates: start: 20090521, end: 20110613
  2. AVONEX [Suspect]
     Route: 030
     Dates: start: 20090501

REACTIONS (2)
  - MOTOR DYSFUNCTION [None]
  - MUSCLE SPASMS [None]
